FAERS Safety Report 18495961 (Version 1)
Quarter: 2020Q4

REPORT INFORMATION
  Report Type: Spontaneous
  Country: US (occurrence: US)
  Receive Date: 20201112
  Receipt Date: 20201112
  Transmission Date: 20210114
  Serious: Yes (Hospitalization)
  Sender: FDA-Public Use
  Company Number: None

PATIENT
  Age: 53 Year
  Sex: Female

DRUGS (25)
  1. ALPRAZOLAM. [Suspect]
     Active Substance: ALPRAZOLAM
  2. CLOBETASOL [Suspect]
     Active Substance: CLOBETASOL
  3. GABAPENTIN. [Concomitant]
     Active Substance: GABAPENTIN
  4. LISINOPRIL. [Concomitant]
     Active Substance: LISINOPRIL
  5. METHYLPHENID [Concomitant]
     Active Substance: METHYLPHENIDATE
  6. SCOPOLAMINE DIS [Concomitant]
  7. ATENOLOL. [Suspect]
     Active Substance: ATENOLOL
  8. DESVENLAFAX [Concomitant]
  9. FUROSEMIDE. [Concomitant]
     Active Substance: FUROSEMIDE
  10. FOLIC ACID. [Concomitant]
     Active Substance: FOLIC ACID
  11. NABUMETONE. [Concomitant]
     Active Substance: NABUMETONE
  12. CLOTRIMAZOLE. [Concomitant]
     Active Substance: CLOTRIMAZOLE
  13. LINZESS [Concomitant]
     Active Substance: LINACLOTIDE
  14. ATORVASTATIN [Suspect]
     Active Substance: ATORVASTATIN
  15. METRONIDAZOL [Concomitant]
     Active Substance: METRONIDAZOLE
  16. TALTZ [Suspect]
     Active Substance: IXEKIZUMAB
     Indication: PSORIATIC ARTHROPATHY
     Dosage: ?          OTHER DOSE:1 PEN;OTHER FREQUENCY:SEE ROUTE;OTHER ROUTE:SQ-WKS 2,4,6,8,10,12?
     Dates: start: 20200505
  17. CYCLOBENZAPR [Concomitant]
     Active Substance: CYCLOBENZAPRINE
  18. DOK [Concomitant]
     Active Substance: DOCUSATE SODIUM
  19. HYDROCO/APAP [Concomitant]
     Active Substance: ACETAMINOPHEN\HYDROCODONE
  20. VALACYCLOVIR [Concomitant]
     Active Substance: VALACYCLOVIR HYDROCHLORIDE
  21. ZOLPIDEM [Concomitant]
     Active Substance: ZOLPIDEM TARTRATE
  22. AZELASTINE. [Suspect]
     Active Substance: AZELASTINE HYDROCHLORIDE
  23. CIPROFLOXACN [Suspect]
     Active Substance: CIPROFLOXACIN
  24. METHOTREXATE. [Concomitant]
     Active Substance: METHOTREXATE
  25. PANTOPRAZOLE [Concomitant]
     Active Substance: PANTOPRAZOLE

REACTIONS (2)
  - Abdominal operation [None]
  - Therapy interrupted [None]

NARRATIVE: CASE EVENT DATE: 20201014
